FAERS Safety Report 9628624 (Version 1)
Quarter: 2013Q4

REPORT INFORMATION
  Report Type: Spontaneous
  Country: US (occurrence: US)
  Receive Date: 20131017
  Receipt Date: 20131017
  Transmission Date: 20140711
  Serious: Yes (Hospitalization)
  Sender: FDA-Public Use
  Company Number: US-SA-2013SA102398

PATIENT
  Sex: 0

DRUGS (2)
  1. AUBAGIO [Suspect]
     Route: 048
     Dates: end: 2013
  2. REBIF [Suspect]
     Route: 065
     Dates: end: 2013

REACTIONS (1)
  - Adverse event [Unknown]
